FAERS Safety Report 12090217 (Version 1)
Quarter: 2016Q1

REPORT INFORMATION
  Report Type: Spontaneous
  Country: US (occurrence: US)
  Receive Date: 20160218
  Receipt Date: 20160218
  Transmission Date: 20160526
  Serious: No
  Sender: FDA-Public Use
  Company Number: US-BRISTOL-MYERS SQUIBB COMPANY-BMS-2016-010945

PATIENT
  Age: 4 Decade
  Sex: Male
  Weight: 81 kg

DRUGS (2)
  1. WARFARIN SODIUM. [Suspect]
     Active Substance: WARFARIN SODIUM
     Indication: INTRAVENTRICULAR HAEMORRHAGE
     Dosage: 5 MG, QD
     Route: 065
  2. HEPARIN [Concomitant]
     Active Substance: HEPARIN SODIUM
     Indication: CEREBRAL VENOUS THROMBOSIS
     Route: 065

REACTIONS (2)
  - Drug interaction [Unknown]
  - Anticoagulation drug level below therapeutic [Unknown]
